FAERS Safety Report 15369939 (Version 1)
Quarter: 2018Q3

REPORT INFORMATION
  Report Type: Spontaneous
  Country: AU (occurrence: AU)
  Receive Date: 20180911
  Receipt Date: 20180911
  Transmission Date: 20181010
  Serious: Yes (Other)
  Sender: FDA-Public Use
  Company Number: AU-CELLTRION INC.-2018AU021905

PATIENT

DRUGS (4)
  1. IRON [Concomitant]
     Active Substance: IRON
  2. INFLECTRA [Suspect]
     Active Substance: INFLIXIMAB-DYYB
     Indication: CROHN^S DISEASE
     Dosage: 5 MG/KG, EVERY 8 WEEKS
     Route: 042
  3. INFLECTRA [Suspect]
     Active Substance: INFLIXIMAB-DYYB
     Dosage: 10 MG/KG, EVERY 6 WEEKS
     Route: 042
     Dates: start: 20180801, end: 20180801
  4. MESALAZINE [Concomitant]
     Active Substance: MESALAMINE

REACTIONS (12)
  - Tremor [Recovered/Resolved]
  - Rash [Recovered/Resolved]
  - Erythema [Unknown]
  - Tachypnoea [Recovered/Resolved]
  - Oropharyngeal pain [Recovered/Resolved]
  - Cough [Unknown]
  - Product use issue [Unknown]
  - Throat tightness [Recovered/Resolved]
  - Cold sweat [Recovered/Resolved]
  - Peripheral coldness [Recovered/Resolved]
  - Pallor [Recovered/Resolved]
  - Anaphylactic reaction [Recovered/Resolved]

NARRATIVE: CASE EVENT DATE: 20180801
